FAERS Safety Report 8588393-5 (Version None)
Quarter: 2012Q3

REPORT INFORMATION
  Report Type: 
  Country: None (occurrence: None)
  Receive Date: 20120813
  Receipt Date: 20120807
  Transmission Date: 20120928
  Serious: Yes (Death)
  Sender: FDA-Public Use
  Company Number: FR-JNJFOC-20120804818

PATIENT

DRUGS (9)
  1. VINCRISTINE [Suspect]
     Indication: DIFFUSE LARGE B-CELL LYMPHOMA
     Dosage: ON DAY 1 IN R-CHOP TREATMENT
     Route: 065
  2. PREDNISONE TAB [Suspect]
     Indication: DIFFUSE LARGE B-CELL LYMPHOMA
     Dosage: ON DAYS 1-5 IN R-CHOP OR ACVBP TREATMENT
     Route: 065
  3. DOXORUBICIN HCL [Suspect]
     Indication: DIFFUSE LARGE B-CELL LYMPHOMA
     Dosage: R-CHOP OR ACVBP TREATMENT
     Route: 042
  4. VINDESINE [Suspect]
     Indication: DIFFUSE LARGE B-CELL LYMPHOMA
     Dosage: ON DAY 1 AND 5 IN ACVBP TREATMENT
     Route: 065
  5. RITUXIMAB [Suspect]
     Indication: DIFFUSE LARGE B-CELL LYMPHOMA
     Dosage: ON DAY 1 IN R-CHOP TREATMENT
     Route: 065
  6. CYCLOPHOSPHAMIDE [Suspect]
     Dosage: ON DAY 1 IN R-CHOP TREATMENT
     Route: 065
  7. BLEOMYCIN [Suspect]
     Indication: DIFFUSE LARGE B-CELL LYMPHOMA
     Dosage: ON DAY 1 AND 5 IN ACVBP TREATMENT
     Route: 065
  8. FLUORODEOXYGLUCOSE F 18 [Concomitant]
     Indication: DIFFUSE LARGE B-CELL LYMPHOMA
     Route: 042
  9. CYCLOPHOSPHAMIDE [Suspect]
     Indication: DIFFUSE LARGE B-CELL LYMPHOMA
     Dosage: IN ACVBP TREATMENT
     Route: 065

REACTIONS (2)
  - MYOCARDIAL INFARCTION [None]
  - DIFFUSE LARGE B-CELL LYMPHOMA RECURRENT [None]
